FAERS Safety Report 9493677 (Version 1)
Quarter: 2013Q3

REPORT INFORMATION
  Report Type: Report from Study
  Country: AR (occurrence: AR)
  Receive Date: 20130902
  Receipt Date: 20130902
  Transmission Date: 20140515
  Serious: Yes (Hospitalization)
  Sender: FDA-Public Use
  Company Number: PHHY2013AR094961

PATIENT
  Sex: Male

DRUGS (1)
  1. DIOVAN D [Suspect]
     Indication: HYPERTENSION
     Dosage: 1 DF (160 MG VALS, 12.5 MG HYDR), DAILY
     Route: 048
     Dates: start: 2002, end: 2008

REACTIONS (2)
  - Arterial occlusive disease [Recovered/Resolved]
  - Arterial disorder [Unknown]
